FAERS Safety Report 11995962 (Version 1)
Quarter: 2016Q1

REPORT INFORMATION
  Report Type: Spontaneous
  Country: IT (occurrence: IT)
  Receive Date: 20160203
  Receipt Date: 20160203
  Transmission Date: 20160526
  Serious: Yes (Hospitalization)
  Sender: FDA-Public Use
  Company Number: PHHY2016IT010697

PATIENT
  Age: 73 Year
  Sex: Female

DRUGS (12)
  1. LANTUS [Interacting]
     Active Substance: INSULIN GLARGINE
     Indication: TYPE 2 DIABETES MELLITUS
     Dosage: 30 IU, QD
     Route: 058
     Dates: start: 20130101, end: 20130615
  2. SEACOR [Concomitant]
     Active Substance: OMEGA-3 FATTY ACIDS
     Indication: PRODUCT USED FOR UNKNOWN INDICATION
     Dosage: 1 G, UNK
     Route: 065
  3. CARDURA [Concomitant]
     Active Substance: DOXAZOSIN MESYLATE
     Indication: PRODUCT USED FOR UNKNOWN INDICATION
     Route: 065
  4. ACTOS [Interacting]
     Active Substance: PIOGLITAZONE HYDROCHLORIDE
     Indication: PRODUCT USED FOR UNKNOWN INDICATION
     Dosage: 30 MG, QD
     Route: 048
     Dates: start: 20130101, end: 20130615
  5. HUMALOG [Interacting]
     Active Substance: INSULIN LISPRO
     Dosage: 16 UNK, UNK
     Route: 065
  6. COMBISARTAN [Concomitant]
     Active Substance: HYDROCHLOROTHIAZIDE\LOSARTAN POTASSIUM
     Indication: PRODUCT USED FOR UNKNOWN INDICATION
     Dosage: 1 DF, UNK
     Route: 065
  7. AZATHIOPRINE. [Concomitant]
     Active Substance: AZATHIOPRINE
     Indication: PRODUCT USED FOR UNKNOWN INDICATION
     Dosage: 100 MG, UNK
     Route: 065
  8. HUMALOG [Interacting]
     Active Substance: INSULIN LISPRO
     Indication: TYPE 2 DIABETES MELLITUS
     Dosage: 52 IU, QD
     Route: 058
     Dates: start: 20130101, end: 20130615
  9. HUMALOG [Interacting]
     Active Substance: INSULIN LISPRO
     Dosage: 16 UNK, UNK
     Route: 065
  10. ATENOLOL. [Suspect]
     Active Substance: ATENOLOL
     Indication: HYPERTENSION
     Dosage: 25 MG, QD
     Route: 048
     Dates: start: 20130101, end: 20130615
  11. LANTUS [Interacting]
     Active Substance: INSULIN GLARGINE
     Dosage: 24 IU, UNK
     Route: 065
  12. HUMALOG [Interacting]
     Active Substance: INSULIN LISPRO
     Dosage: 10 UNK, UNK
     Route: 065

REACTIONS (4)
  - Hypokalaemia [Recovered/Resolved]
  - Hypoglycaemia [Recovered/Resolved]
  - Drug interaction [Recovered/Resolved]
  - Fasting [Recovered/Resolved]

NARRATIVE: CASE EVENT DATE: 20130615
